FAERS Safety Report 20757750 (Version 1)
Quarter: 2022Q2

REPORT INFORMATION
  Report Type: Spontaneous
  Country: IN (occurrence: IN)
  Receive Date: 20220427
  Receipt Date: 20220427
  Transmission Date: 20220721
  Serious: Yes (Hospitalization)
  Sender: FDA-Public Use
  Company Number: IN-ENDO PHARMACEUTICALS INC-2022-002610

PATIENT
  Age: 83 Year
  Sex: Male

DRUGS (1)
  1. BACLOFEN [Suspect]
     Active Substance: BACLOFEN
     Indication: Hiccups
     Dosage: 20 MG, SINGLE
     Route: 048

REACTIONS (4)
  - Encephalopathy [Recovered/Resolved]
  - Wrong dose [Recovered/Resolved]
  - Incorrect product dosage form administered [Recovered/Resolved]
  - Off label use [Recovered/Resolved]
